FAERS Safety Report 6729969-7 (Version None)
Quarter: 2010Q2

REPORT INFORMATION
  Report Type: 
  Country: None (occurrence: None)
  Receive Date: 20100518
  Receipt Date: 20100510
  Transmission Date: 20101027
  Serious: Yes (Hospitalization, Other)
  Sender: FDA-Public Use
  Company Number: NO-SANOFI-AVENTIS-2010SA024480

PATIENT
  Age: 74 Year
  Sex: Male

DRUGS (14)
  1. ARAVA [Suspect]
     Indication: RHEUMATOID ARTHRITIS
     Dates: start: 20060101, end: 20100301
  2. GLUCOPHAGE [Concomitant]
  3. FURIX [Concomitant]
  4. CALCIGRAN [Concomitant]
  5. PIOGLITAZONE [Concomitant]
  6. DIGITOXIN [Concomitant]
  7. TRIOBE [Concomitant]
  8. OXIS TURBUHALER ^DRACO^ [Concomitant]
  9. ATROVENT [Concomitant]
  10. PRAVACHOL [Concomitant]
  11. SELO-ZOK [Concomitant]
  12. AMARYL [Concomitant]
  13. PREDNISOLONE [Concomitant]
  14. WARFARIN SODIUM [Concomitant]

REACTIONS (1)
  - HEPATIC FAILURE [None]
